FAERS Safety Report 25519595 (Version 1)
Quarter: 2025Q3

REPORT INFORMATION
  Report Type: Report from Study
  Country: CA (occurrence: CA)
  Receive Date: 20250704
  Receipt Date: 20250704
  Transmission Date: 20251020
  Serious: Yes (Death, Other)
  Sender: TAKEDA
  Company Number: CA-TAKEDA-2025TUS061033

PATIENT
  Age: 102 Year
  Sex: Female

DRUGS (15)
  1. VEDOLIZUMAB [Suspect]
     Active Substance: VEDOLIZUMAB
     Indication: Colitis ulcerative
  2. VEDOLIZUMAB [Suspect]
     Active Substance: VEDOLIZUMAB
     Dosage: 300 MILLIGRAM, Q6WEEKS
     Dates: start: 20190605
  3. VEDOLIZUMAB [Suspect]
     Active Substance: VEDOLIZUMAB
     Dosage: 300 MILLIGRAM, Q5WEEKS
     Dates: start: 20220720
  4. VEDOLIZUMAB [Suspect]
     Active Substance: VEDOLIZUMAB
     Dosage: 300 MILLIGRAM, Q4WEEKS
     Dates: start: 20240403
  5. ACETAMINOPHEN [Concomitant]
     Active Substance: ACETAMINOPHEN
  6. BISOPROLOL [Concomitant]
     Active Substance: BISOPROLOL
  7. FOLIC ACID [Concomitant]
     Active Substance: FOLIC ACID
  8. ASPIRIN [Concomitant]
     Active Substance: ASPIRIN
  9. RANITIDINE [Concomitant]
     Active Substance: RANITIDINE
  10. LASIX [Concomitant]
     Active Substance: FUROSEMIDE
  11. OMEPRAZOLE [Concomitant]
     Active Substance: OMEPRAZOLE
  12. RAMIPRIL [Concomitant]
     Active Substance: RAMIPRIL
  13. VITAMIN D [Concomitant]
     Active Substance: VITAMIN D NOS
  14. METOPROLOL [Concomitant]
     Active Substance: METOPROLOL
  15. SENOKOT [Concomitant]
     Active Substance: SENNOSIDES

REACTIONS (2)
  - Death [Fatal]
  - Off label use [Unknown]

NARRATIVE: CASE EVENT DATE: 20240403
